FAERS Safety Report 8294602-2 (Version None)
Quarter: 2012Q2

REPORT INFORMATION
  Report Type: 
  Country: None (occurrence: None)
  Receive Date: 20120418
  Receipt Date: 20120411
  Transmission Date: 20120825
  Serious: Yes (Hospitalization)
  Sender: FDA-Public Use
  Company Number: US-ACTELION-A-NJ2012-63443

PATIENT

DRUGS (14)
  1. ALBUTEROL [Concomitant]
  2. DIGOXIN [Concomitant]
  3. LISINOPRIL [Concomitant]
  4. GLIPIZIDE [Concomitant]
  5. TRACLEER [Suspect]
     Indication: PULMONARY ARTERIAL HYPERTENSION
     Dosage: 62.5 MG, BID
     Route: 048
     Dates: start: 20110602
  6. IPRATROPIUM BROMIDE [Concomitant]
  7. AMLODIPINE [Concomitant]
  8. ALLOPURINOL [Concomitant]
  9. COLCHICINE [Concomitant]
  10. FLOVENT HFA [Concomitant]
  11. OMEPRAZOLE [Concomitant]
  12. PREDNISONE TAB [Concomitant]
  13. ADCIRCA [Concomitant]
  14. FERROUS SULFATE TAB [Concomitant]

REACTIONS (4)
  - NECK PAIN [None]
  - ASTHENIA [None]
  - FATIGUE [None]
  - SPINAL COLUMN STENOSIS [None]
